FAERS Safety Report 9484807 (Version 1)
Quarter: 2013Q3

REPORT INFORMATION
  Report Type: Spontaneous
  Country: US (occurrence: US)
  Receive Date: 20130828
  Receipt Date: 20130828
  Transmission Date: 20140515
  Serious: Yes (Death)
  Sender: FDA-Public Use
  Company Number: US-AMGEN-USASP2011000122

PATIENT
  Sex: Male

DRUGS (11)
  1. ENBREL [Suspect]
     Indication: PRODUCT USED FOR UNKNOWN INDICATION
     Dosage: 50 MG, UNK
     Route: 058
  2. METHOTREXATE [Concomitant]
     Dosage: 2.5 MG, UNK
  3. ENALAPRIL [Concomitant]
     Dosage: 2.5 MG, UNK
  4. SIMVASTATIN [Concomitant]
     Dosage: 5 MG, UNK
  5. LANOXIN [Concomitant]
     Dosage: .25 MG, UNK
  6. WARFARIN [Concomitant]
     Dosage: 1 MG, UNK
  7. VITAMIN D                          /00107901/ [Concomitant]
     Dosage: 400 IU, UNK
  8. FISH OIL [Concomitant]
  9. FOLIC ACID [Concomitant]
     Dosage: 5 MG, UNK
  10. VITAMIN C                          /00008001/ [Concomitant]
     Dosage: 100 MG, UNK
  11. MULTIVITAMINS [Concomitant]

REACTIONS (1)
  - Death [Fatal]
